FAERS Safety Report 11374656 (Version 2)
Quarter: 2015Q4

REPORT INFORMATION
  Report Type: Spontaneous
  Country: US (occurrence: US)
  Receive Date: 20150813
  Receipt Date: 20151021
  Transmission Date: 20160304
  Serious: Yes (Hospitalization, Disabling)
  Sender: FDA-Public Use
  Company Number: US-WEST-WARD PHARMACEUTICALS CORP.-US-H14001-15-01403

PATIENT
  Age: 69 Year
  Sex: Female
  Weight: 82 kg

DRUGS (15)
  1. MUCINEX [Concomitant]
     Active Substance: GUAIFENESIN
     Indication: RESPIRATORY TRACT CONGESTION
     Route: 048
     Dates: start: 20150708
  2. PROZAC [Concomitant]
     Active Substance: FLUOXETINE HYDROCHLORIDE
     Indication: ANXIETY
     Route: 048
  3. MORPHINE [Concomitant]
     Active Substance: MORPHINE
     Route: 037
     Dates: start: 201507, end: 201507
  4. PROAIR-HFA [Concomitant]
     Indication: PRODUCT USED FOR UNKNOWN INDICATION
     Route: 055
     Dates: start: 20150622
  5. LEVAQUIN [Concomitant]
     Active Substance: LEVOFLOXACIN
     Indication: RESPIRATORY TRACT CONGESTION
     Route: 048
  6. MORPHINE [Concomitant]
     Active Substance: MORPHINE
     Route: 037
     Dates: start: 201507, end: 201507
  7. ADVAIR HFA [Concomitant]
     Active Substance: FLUTICASONE PROPIONATE\SALMETEROL XINAFOATE
     Indication: PRODUCT USED FOR UNKNOWN INDICATION
     Route: 055
     Dates: start: 20150708
  8. FLUOXETINE [Concomitant]
     Active Substance: FLUOXETINE HYDROCHLORIDE
     Indication: PRODUCT USED FOR UNKNOWN INDICATION
     Route: 048
  9. MORPHINE [Concomitant]
     Active Substance: MORPHINE
     Indication: PRODUCT USED FOR UNKNOWN INDICATION
     Route: 037
     Dates: end: 201507
  10. FLUOXETINE [Concomitant]
     Active Substance: FLUOXETINE HYDROCHLORIDE
     Route: 048
  11. INFUMORPH [Suspect]
     Active Substance: MORPHINE SULFATE
     Route: 037
     Dates: start: 20150730
  12. INFUMORPH [Suspect]
     Active Substance: MORPHINE SULFATE
     Indication: PAIN
     Route: 037
     Dates: start: 20150710, end: 20150730
  13. KLOR-CON [Concomitant]
     Active Substance: POTASSIUM CHLORIDE
     Indication: PRODUCT USED FOR UNKNOWN INDICATION
     Route: 048
     Dates: start: 20150708
  14. MICROZIDE [Concomitant]
     Active Substance: HYDROCHLOROTHIAZIDE
     Indication: PRODUCT USED FOR UNKNOWN INDICATION
     Route: 048
     Dates: start: 20150708
  15. NORCO [Concomitant]
     Active Substance: ACETAMINOPHEN\HYDROCODONE BITARTRATE
     Indication: PRODUCT USED FOR UNKNOWN INDICATION
     Route: 048
     Dates: start: 20150708

REACTIONS (13)
  - Asthenia [Unknown]
  - Musculoskeletal stiffness [Unknown]
  - Incision site pruritus [Unknown]
  - Fatigue [Unknown]
  - Incision site pain [Unknown]
  - Back pain [Unknown]
  - Myalgia [Unknown]
  - Weight decreased [Unknown]
  - Drug withdrawal syndrome [Unknown]
  - Incision site complication [Unknown]
  - Decreased appetite [Unknown]
  - Gait disturbance [Unknown]
  - Muscular weakness [Unknown]

NARRATIVE: CASE EVENT DATE: 201507
